FAERS Safety Report 8862003 (Version 1)
Quarter: 2012Q4

REPORT INFORMATION
  Report Type: Report from Study
  Country: US (occurrence: US)
  Receive Date: 20121025
  Receipt Date: 20121025
  Transmission Date: 20130627
  Serious: Yes (Hospitalization, Other)
  Sender: FDA-Public Use
  Company Number: US-ABBOTT-12P-163-0997450-00

PATIENT
  Age: 60 Year
  Sex: Female

DRUGS (12)
  1. HUMIRA [Suspect]
     Indication: CROHN^S DISEASE
     Dates: start: 2009
  2. LISINOPRIL [Concomitant]
     Indication: HYPERTENSION
     Dosage: 40mg daily
  3. ESTRADIOL [Concomitant]
     Indication: HORMONE REPLACEMENT THERAPY
     Dosage: 2mg daily
  4. ADVAIR [Concomitant]
     Indication: ASTHMA
  5. POTASSIUM [Concomitant]
     Indication: PRODUCT USED FOR UNKNOWN INDICATION
     Dosage: 60mg daily
  6. B12 [Concomitant]
     Indication: VITAMIN B12 DEFICIENCY
  7. CALCIUM PLUS VITAMIN D [Concomitant]
     Indication: PRODUCT USED FOR UNKNOWN INDICATION
     Dosage: 600mg daily
  8. FOLIC ACID [Concomitant]
     Indication: PRODUCT USED FOR UNKNOWN INDICATION
     Dosage: 1mg daily
  9. MULTIVITAMIN [Concomitant]
     Indication: PRODUCT USED FOR UNKNOWN INDICATION
  10. TRAMADOL [Concomitant]
     Indication: PRODUCT USED FOR UNKNOWN INDICATION
  11. HYDROCODONE [Concomitant]
     Indication: PRODUCT USED FOR UNKNOWN INDICATION
  12. DEMEROL [Concomitant]
     Indication: PAIN

REACTIONS (8)
  - Ileal ulcer [Recovering/Resolving]
  - Ileal stenosis [Recovering/Resolving]
  - Anal fistula [Unknown]
  - Anal abscess [Unknown]
  - Injection site pain [Unknown]
  - Injection site pain [Unknown]
  - Dysuria [Unknown]
  - Micturition urgency [Unknown]
